FAERS Safety Report 5482146-2 (Version None)
Quarter: 2007Q4

REPORT INFORMATION
  Report Type: 
  Country: None (occurrence: None)
  Receive Date: 20071011
  Receipt Date: 20070928
  Transmission Date: 20080405
  Serious: Yes (Death)
  Sender: FDA-Public Use
  Company Number: US-JNJFOC-20071001791

PATIENT
  Age: 6 Month
  Sex: Female

DRUGS (7)
  1. CONCENTRATED INFANTS TYLENOL PLUS COLD [Suspect]
     Indication: BRONCHOPNEUMONIA
  2. CARBAXEFED RF [Suspect]
     Indication: BRONCHOPNEUMONIA
  3. AMOXICILLIN [Suspect]
     Indication: BRONCHOPNEUMONIA
  4. TYLENOL (CAPLET) [Concomitant]
  5. MOTRIN [Concomitant]
  6. PEDIALYTE [Concomitant]
  7. DEXTROMETHORPHAN HYDROBROMIDE [Concomitant]

REACTIONS (5)
  - DRUG ADMINISTRATION ERROR [None]
  - LISTLESS [None]
  - OVERDOSE [None]
  - PNEUMONIA [None]
  - SCREAMING [None]
